FAERS Safety Report 5676917-7 (Version None)
Quarter: 2008Q1

REPORT INFORMATION
  Report Type: 
  Country: None (occurrence: None)
  Receive Date: 20080324
  Receipt Date: 20080313
  Transmission Date: 20080703
  Serious: Yes (Hospitalization)
  Sender: FDA-Public Use
  Company Number: US-MERCK-0803USA02090

PATIENT
  Age: 75 Year
  Sex: Female

DRUGS (4)
  1. FOSAMAX [Suspect]
     Indication: OSTEOPOROSIS
     Route: 048
     Dates: start: 20000101
  2. COUMADIN [Concomitant]
     Route: 065
  3. LISINOPRIL [Concomitant]
     Route: 048
  4. DIURETIC (UNSPECIFIED) [Concomitant]
     Route: 065

REACTIONS (2)
  - PALPITATIONS [None]
  - TOOTH LOSS [None]
